FAERS Safety Report 5592433-5 (Version None)
Quarter: 2008Q1

REPORT INFORMATION
  Report Type: 
  Country: None (occurrence: None)
  Receive Date: 20080115
  Receipt Date: 20080107
  Transmission Date: 20080703
  Serious: Yes (Hospitalization)
  Sender: FDA-Public Use
  Company Number: AT-PFIZER INC-2008002285

PATIENT
  Sex: Female
  Weight: 65 kg

DRUGS (4)
  1. NORVASC [Suspect]
     Indication: HYPERTENSION
     Route: 048
  2. NORVASC [Suspect]
     Dosage: DAILY DOSE:7.5MG
     Route: 048
     Dates: start: 20071001, end: 20071201
  3. NORVASC [Suspect]
     Route: 048
  4. PLAVIX [Concomitant]
     Indication: CEREBROVASCULAR ACCIDENT PROPHYLAXIS
     Dosage: DAILY DOSE:75MG
     Route: 048

REACTIONS (10)
  - ARTHRALGIA [None]
  - BLOOD PRESSURE INCREASED [None]
  - CEREBROVASCULAR INSUFFICIENCY [None]
  - DRY MOUTH [None]
  - HEART RATE INCREASED [None]
  - MUCOSAL INFLAMMATION [None]
  - NAUSEA [None]
  - PALPITATIONS [None]
  - SKIN DISORDER [None]
  - URINARY RETENTION [None]
